FAERS Safety Report 4948121-9 (Version None)
Quarter: 2006Q1

REPORT INFORMATION
  Report Type: 
  Country: None (occurrence: None)
  Receive Date: 20060320
  Receipt Date: 20050824
  Transmission Date: 20060701
  Serious: Yes (Hospitalization, Disabling, Other)
  Sender: FDA-Public Use
  Company Number: US-MERCK-0508USA04108

PATIENT
  Age: 48 Year
  Sex: Female
  Weight: 99 kg

DRUGS (2)
  1. VIOXX [Suspect]
     Indication: ARTHRITIS
     Route: 048
     Dates: start: 20001001, end: 20041001
  2. VIOXX [Suspect]
     Indication: FIBROMYALGIA
     Route: 048
     Dates: start: 20001001, end: 20041001

REACTIONS (14)
  - AMNESIA [None]
  - ARTHROPATHY [None]
  - ASTHENIA [None]
  - BLOOD PRESSURE FLUCTUATION [None]
  - CARPAL TUNNEL SYNDROME [None]
  - CEREBROVASCULAR ACCIDENT [None]
  - CHEST PAIN [None]
  - DYSPNOEA [None]
  - HEMIPARESIS [None]
  - HOT FLUSH [None]
  - HYPOTHYROIDISM [None]
  - MIGRAINE [None]
  - NON-CARDIAC CHEST PAIN [None]
  - SPINAL OSTEOARTHRITIS [None]
